FAERS Safety Report 15222407 (Version 13)
Quarter: 2022Q1

REPORT INFORMATION
  Report Type: Report from Study
  Country: JP (occurrence: JP)
  Receive Date: 20180731
  Receipt Date: 20220311
  Transmission Date: 20220423
  Serious: No
  Sender: FDA-Public Use
  Company Number: JP-PFIZER INC-2018300266

PATIENT
  Age: 8 Year
  Sex: Male
  Weight: 15.85 kg

DRUGS (10)
  1. BESPONSA [Suspect]
     Active Substance: INOTUZUMAB OZOGAMICIN
     Indication: Acute lymphocytic leukaemia
     Dosage: 0.8 MG/M2, DAILY
     Route: 041
     Dates: start: 20180724
  2. PREDONINE [Suspect]
     Active Substance: PREDNISOLONE
     Indication: Acute lymphocytic leukaemia
     Dosage: 8 MG, 3X/DAY
     Dates: start: 20180719, end: 20180722
  3. PREDONINE [Suspect]
     Active Substance: PREDNISOLONE
     Dosage: 16 MG, 3X/DAY
     Dates: start: 20180723
  4. SULFAMETHOXAZOLE\TRIMETHOPRIM [Concomitant]
     Active Substance: SULFAMETHOXAZOLE\TRIMETHOPRIM
     Indication: Pneumocystis jirovecii pneumonia
     Dosage: 0.6 G, 1X/DAY
     Route: 048
     Dates: start: 20180719
  5. URSODIOL [Concomitant]
     Active Substance: URSODIOL
     Indication: Liver disorder
     Dosage: 200 MG, 3X/DAY
     Route: 048
     Dates: start: 20170719
  6. VFEND [Concomitant]
     Active Substance: VORICONAZOLE
     Indication: Fungal infection
     Dosage: .160 MG, DAILY
     Route: 048
     Dates: start: 20180719
  7. ACYCLOVIR [Concomitant]
     Active Substance: ACYCLOVIR
     Indication: Herpes virus infection
     Dosage: 100 MG, 1X/DAY
     Route: 048
     Dates: start: 20180719, end: 20180724
  8. FAMOTIDINE [Concomitant]
     Active Substance: FAMOTIDINE
     Indication: Renal disorder
     Dosage: 10 G, 2X/DAY
     Dates: start: 20180719, end: 20180728
  9. AMINO ACIDS\DEXTROSE\ELECTROLYTES NOS\MINERALS\VITAMINS [Concomitant]
     Active Substance: AMINO ACIDS\DEXTROSE\ELECTROLYTES NOS\MINERALS\VITAMINS
     Indication: Fluid replacement
     Dosage: 1000 ML, 1X/DAY
     Dates: start: 20180724, end: 20180801
  10. FEBUXOSTAT [Concomitant]
     Active Substance: FEBUXOSTAT
     Indication: Hyperlipidaemia
     Dosage: 20 G, 1X/DAY
     Dates: start: 20180719, end: 20180809

REACTIONS (11)
  - Liver disorder [Not Recovered/Not Resolved]
  - Ascites [Recovered/Resolved]
  - Blood pressure ambulatory increased [Recovering/Resolving]
  - Liver disorder [Recovered/Resolved]
  - Pancreatitis [Recovered/Resolved]
  - Neoplasm progression [Not Recovered/Not Resolved]
  - Blood glucose increased [Unknown]
  - Blood lactate dehydrogenase increased [Unknown]
  - Heart rate decreased [Unknown]
  - Pain in extremity [Not Recovered/Not Resolved]
  - Pain in jaw [Not Recovered/Not Resolved]

NARRATIVE: CASE EVENT DATE: 20180101
